FAERS Safety Report 7794484-9 (Version None)
Quarter: 2011Q4

REPORT INFORMATION
  Report Type: 
  Country: None (occurrence: None)
  Receive Date: 20111004
  Receipt Date: 20110822
  Transmission Date: 20120403
  Serious: Yes (Other)
  Sender: FDA-Public Use
  Company Number: FR-BAYER-2011-075938

PATIENT
  Age: 59 Year
  Sex: Male

DRUGS (6)
  1. CERUBIDINE [Suspect]
     Indication: ACUTE LEUKAEMIA
     Dosage: 70 MG, QD
     Route: 042
     Dates: start: 20081114, end: 20081116
  2. MYLOTARG [Suspect]
     Indication: ACUTE LEUKAEMIA
     Dosage: 12 MG, QD
     Route: 042
     Dates: start: 20081117, end: 20081117
  3. GENTAMICIN [Concomitant]
  4. CIPROFLOXACIN [Suspect]
     Indication: PRODUCT USED FOR UNKNOWN INDICATION
     Dosage: UNK
     Route: 065
  5. CYTARABINE [Suspect]
     Indication: ACUTE MYELOID LEUKAEMIA
     Dosage: 400 MG, QD
     Route: 042
     Dates: start: 20081114, end: 20081117
  6. ROCEPHIN [Concomitant]

REACTIONS (2)
  - STATUS EPILEPTICUS [None]
  - PYREXIA [None]
